FAERS Safety Report 20652271 (Version 4)
Quarter: 2022Q2

REPORT INFORMATION
  Report Type: Report from Study
  Country: US (occurrence: US)
  Receive Date: 20220330
  Receipt Date: 20220510
  Transmission Date: 20220721
  Serious: No
  Sender: FDA-Public Use
  Company Number: US-NOVARTISTESTPH-NVSC2022US071861

PATIENT
  Sex: Male

DRUGS (1)
  1. ENTRESTO [Suspect]
     Active Substance: SACUBITRIL\VALSARTAN
     Indication: Product used for unknown indication
     Dosage: 1 DOSAGE FORM, BID((24/26 MG)
     Route: 048
     Dates: start: 202202

REACTIONS (4)
  - Weight fluctuation [Unknown]
  - Dyspepsia [Unknown]
  - Throat clearing [Unknown]
  - Pain [Unknown]
